FAERS Safety Report 9191031 (Version 2)
Quarter: 2013Q2

REPORT INFORMATION
  Report Type: Spontaneous
  Country: NL (occurrence: NL)
  Receive Date: 20130326
  Receipt Date: 20130501
  Transmission Date: 20140414
  Serious: Yes (Other)
  Sender: FDA-Public Use
  Company Number: NL-ELI_LILLY_AND_COMPANY-NL201303006091

PATIENT
  Sex: Female

DRUGS (10)
  1. CYMBALTA [Suspect]
     Dosage: 30 MG, UNKNOWN
     Route: 065
     Dates: start: 200808, end: 200811
  2. CYMBALTA [Suspect]
     Dosage: 60 MG, UNKNOWN
     Dates: start: 200811
  3. CYMBALTA [Suspect]
     Dosage: 30 MG, UNKNOWN
     Dates: start: 201202, end: 201211
  4. CYMBALTA [Suspect]
     Dosage: 60 MG, UNKNOWN
     Dates: start: 201211, end: 201304
  5. CYMBALTA [Suspect]
     Dosage: 60 MG, QD
     Route: 065
     Dates: start: 201203, end: 20130307
  6. CYMBALTA [Suspect]
     Dosage: 30 MG, QD
     Route: 065
     Dates: start: 20130307
  7. BISOPROLOL [Concomitant]
     Dosage: 5 MG, UNKNOWN
  8. HYDROCHLOROTHIAZIDE [Concomitant]
     Dosage: 12.5 MG, UNKNOWN
  9. PANTOPRAZOL [Concomitant]
     Dosage: 40 MG, UNKNOWN
  10. ARTELAC [Concomitant]
     Dosage: 1 DF, UNKNOWN
     Route: 001

REACTIONS (8)
  - Anxiety [Unknown]
  - Drug withdrawal syndrome [Unknown]
  - Blood glucose increased [Unknown]
  - Blood pressure increased [Unknown]
  - Gamma-glutamyltransferase increased [Unknown]
  - Blood triglycerides increased [Unknown]
  - Blood cholesterol increased [Unknown]
  - Hepatic enzyme increased [Unknown]
